FAERS Safety Report 10186790 (Version 1)
Quarter: 2014Q2

REPORT INFORMATION
  Report Type: Report from Study
  Country: TR (occurrence: TR)
  Receive Date: 20140521
  Receipt Date: 20140521
  Transmission Date: 20141212
  Serious: Yes (Other)
  Sender: FDA-Public Use
  Company Number: TR-US-EMD SERONO, INC.-7292030

PATIENT
  Sex: Female
  Weight: 50 kg

DRUGS (2)
  1. REBIF [Suspect]
     Indication: MULTIPLE SCLEROSIS
  2. LUSTRAL [Suspect]
     Indication: DEPRESSION

REACTIONS (3)
  - Rectal haemorrhage [Unknown]
  - Large intestine polyp [Unknown]
  - Irritable bowel syndrome [Unknown]
